FAERS Safety Report 5082091-0 (Version None)
Quarter: 2006Q3

REPORT INFORMATION
  Report Type: 
  Country: None (occurrence: None)
  Receive Date: 20060815
  Receipt Date: 20060815
  Transmission Date: 20061208
  Serious: Yes (Hospitalization)
  Sender: FDA-Public Use
  Company Number: None

PATIENT
  Age: 91 Year
  Sex: Female
  Weight: 49.4421 kg

DRUGS (9)
  1. RITUXIMAB [Suspect]
     Indication: NON-HODGKIN'S LYMPHOMA
     Dosage: 357 MG/2WKS;   525MG/4WKS
     Dates: start: 20060124, end: 20060301
  2. IBITUMOMAB TIUXETAN [Suspect]
     Indication: NON-HODGKIN'S LYMPHOMA
     Dosage: 20.2 MCI
     Dates: start: 20060131
  3. AMLODIPINE BESYLATE [Concomitant]
  4. FAMOTIDINE [Concomitant]
  5. METOPROLOL SUCCINATE [Concomitant]
  6. OXYBUTYNIN CHLORIDE [Concomitant]
  7. TIMOLOL MALEATE [Concomitant]
  8. TOPROL-XL [Concomitant]
  9. ZOCOR [Concomitant]

REACTIONS (2)
  - IMMUNE SYSTEM DISORDER [None]
  - PNEUMONIA [None]
